FAERS Safety Report 4508817-X (Version None)
Quarter: 2004Q4

REPORT INFORMATION
  Report Type: 
  Country: None (occurrence: None)
  Receive Date: 20041123
  Receipt Date: 20040825
  Transmission Date: 20050328
  Serious: No
  Sender: FDA-Public Use
  Company Number: US-GLAXOSMITHKLINE-A0523481A

PATIENT
  Age: 28 Year
  Sex: Female

DRUGS (2)
  1. WELLBUTRIN SR [Suspect]
     Dosage: 300MG TWICE PER DAY
     Route: 048
     Dates: start: 20040801, end: 20040820
  2. ORAL CONTRACEPTIVES [Concomitant]

REACTIONS (7)
  - CRYING [None]
  - DRUG TOXICITY [None]
  - DYSGEUSIA [None]
  - ILL-DEFINED DISORDER [None]
  - INSOMNIA [None]
  - MEDICATION ERROR [None]
  - RASH [None]
